FAERS Safety Report 6882960-2 (Version None)
Quarter: 2010Q3

REPORT INFORMATION
  Report Type: 
  Country: None (occurrence: None)
  Receive Date: 20100729
  Receipt Date: 20100726
  Transmission Date: 20110219
  Serious: Yes (Death)
  Sender: FDA-Public Use
  Company Number: EC-ROCHE-717605

PATIENT
  Age: 36 Year
  Sex: Female

DRUGS (2)
  1. HERCEPTIN [Suspect]
     Indication: BREAST CANCER
     Dosage: STOP DATE: APRIL 2010. DOSING FREQ: EACH 3 WEEK
     Route: 042
  2. DOCETAXEL [Concomitant]
     Indication: BREAST CANCER
     Dosage: STOP DATE: APRIL 2010. DOSING FREQ: EACH 3 WEEK.
     Route: 042

REACTIONS (1)
  - DISEASE PROGRESSION [None]
